FAERS Safety Report 19173041 (Version 3)
Quarter: 2021Q2

REPORT INFORMATION
  Report Type: Spontaneous
  Country: US (occurrence: US)
  Receive Date: 20210423
  Receipt Date: 20210518
  Transmission Date: 20210717
  Serious: No
  Sender: FDA-Public Use
  Company Number: NVSC2021US086439

PATIENT
  Sex: Female

DRUGS (5)
  1. TRAMETINIB [Suspect]
     Active Substance: TRAMETINIB
     Indication: LYMPHATIC DISORDER
  2. TRAMETINIB [Suspect]
     Active Substance: TRAMETINIB
     Indication: CHYLOTHORAX
  3. OCTREOTIDE. [Concomitant]
     Active Substance: OCTREOTIDE
     Indication: PRODUCT USED FOR UNKNOWN INDICATION
     Dosage: UNK
     Route: 065
  4. TRAMETINIB [Suspect]
     Active Substance: TRAMETINIB
     Indication: NOONAN SYNDROME
     Dosage: UNK (0.09 MG/ 1.8 ML PO DAILY; POWDER TO PREPARE 0.05 MG/ML LIQUID)
     Route: 065
  5. TRAMETINIB [Suspect]
     Active Substance: TRAMETINIB
     Indication: RESPIRATORY FAILURE

REACTIONS (1)
  - Product use in unapproved indication [Unknown]
